FAERS Safety Report 13730541 (Version 2)
Quarter: 2017Q3

REPORT INFORMATION
  Report Type: Spontaneous
  Country: US (occurrence: US)
  Receive Date: 20170707
  Receipt Date: 20170724
  Transmission Date: 20171127
  Serious: Yes (Death, Hospitalization)
  Sender: FDA-Public Use
  Company Number: US-JNJFOC-20170605548

PATIENT
  Age: 53 Year
  Sex: Female

DRUGS (8)
  1. HEPARIN [Suspect]
     Active Substance: HEPARIN SODIUM
     Indication: PRODUCT USED FOR UNKNOWN INDICATION
     Route: 065
  2. VENLAFAXIN [Concomitant]
     Active Substance: VENLAFAXINE HYDROCHLORIDE
     Route: 065
     Dates: start: 20160228, end: 20160618
  3. LEVONOX [Suspect]
     Active Substance: ENOXAPARIN
     Indication: SUBCLAVIAN ARTERY STENOSIS
     Route: 065
     Dates: start: 201606
  4. ASPRIN [Suspect]
     Active Substance: ASPIRIN
     Indication: SUBCLAVIAN ARTERY STENOSIS
     Dosage: FOR MORE THAN 2 WEEKS.
     Route: 065
     Dates: start: 201606
  5. XARELTO [Suspect]
     Active Substance: RIVAROXABAN
     Indication: SUBCLAVIAN ARTERY STENOSIS
     Route: 048
     Dates: start: 20160322, end: 20160618
  6. PLAVIX [Suspect]
     Active Substance: CLOPIDOGREL BISULFATE
     Indication: SUBCLAVIAN ARTERY STENOSIS
     Route: 065
     Dates: start: 201606
  7. CYANOCOBALAMIN. [Concomitant]
     Active Substance: CYANOCOBALAMIN
     Route: 065
     Dates: start: 20160226, end: 20160618
  8. SYNTHROID [Concomitant]
     Active Substance: LEVOTHYROXINE SODIUM
     Route: 065
     Dates: start: 20160226, end: 20160618

REACTIONS (8)
  - Acute kidney injury [Fatal]
  - Off label use [Unknown]
  - Shock haemorrhagic [Fatal]
  - Postoperative thrombosis [Unknown]
  - Product use in unapproved indication [Unknown]
  - Disseminated intravascular coagulation [Fatal]
  - Retroperitoneal haemorrhage [Fatal]
  - Stent-graft endoleak [Fatal]

NARRATIVE: CASE EVENT DATE: 20160322
